FAERS Safety Report 5196974-4 (Version None)
Quarter: 2006Q4

REPORT INFORMATION
  Report Type: 
  Country: None (occurrence: None)
  Receive Date: 20061227
  Receipt Date: 20061212
  Transmission Date: 20070319
  Serious: Yes (Hospitalization)
  Sender: FDA-Public Use
  Company Number: 151001ISR

PATIENT
  Age: 1 Day
  Sex: Female

DRUGS (3)
  1. DIAZEPAM [Suspect]
     Indication: DEPRESSION
     Dosage: (10 MG)
  2. BUSPIRONE HCL [Suspect]
     Indication: DEPRESSION
     Dosage: (30 MG)
  3. IMIPRAMINE [Suspect]
     Indication: DEPRESSION
     Dosage: (150 MG)

REACTIONS (6)
  - DRUG EXPOSURE DURING PREGNANCY [None]
  - FEEDING DISORDER NEONATAL [None]
  - FEELING JITTERY [None]
  - HYPOTONIA NEONATAL [None]
  - NEONATAL TACHYPNOEA [None]
  - POOR SUCKING REFLEX [None]
